FAERS Safety Report 19192032 (Version 1)
Quarter: 2021Q2

REPORT INFORMATION
  Report Type: Spontaneous
  Country: US (occurrence: US)
  Receive Date: 20210429
  Receipt Date: 20210429
  Transmission Date: 20210717
  Serious: No
  Sender: FDA-Public Use
  Company Number: US-AKCEA THERAPEUTICS, INC.-2021IS001044

PATIENT
  Age: 70 Year
  Sex: Female

DRUGS (3)
  1. TEGSEDI [Suspect]
     Active Substance: INOTERSEN SODIUM
     Indication: HEREDITARY NEUROPATHIC AMYLOIDOSIS
     Route: 058
  2. ISSD (INTEGRATED SYRINGE SAFETY DEVICE) [Suspect]
     Active Substance: DEVICE
  3. TEGSEDI [Suspect]
     Active Substance: INOTERSEN SODIUM
     Indication: POLYNEUROPATHY
     Route: 058

REACTIONS (7)
  - Blood creatinine abnormal [Unknown]
  - Protein urine present [Unknown]
  - Urine leukocyte esterase positive [Unknown]
  - Platelet aggregation abnormal [Unknown]
  - Urine protein/creatinine ratio increased [Unknown]
  - Urine abnormality [Unknown]
  - Glomerular filtration rate decreased [Unknown]
